FAERS Safety Report 8428658-0 (Version None)
Quarter: 2012Q2

REPORT INFORMATION
  Report Type: 
  Country: None (occurrence: None)
  Receive Date: 20120606
  Receipt Date: 20120521
  Transmission Date: 20120825
  Serious: Yes (Hospitalization, Other)
  Sender: FDA-Public Use
  Company Number: FK201201453

PATIENT
  Age: 76 Year
  Sex: Female

DRUGS (5)
  1. ANTIHYPERTENSIVE (ANTIHYPERTENSIVES) [Concomitant]
  2. AZITHROMYCIN [Suspect]
     Indication: OROPHARYNGEAL PAIN
  3. FLUCONAZOLE [Concomitant]
  4. DEXAMETHASONE W/ TOBRAMYCIN (TOBRADEX) [Concomitant]
  5. FLUID REPLACEMENT (BARIUM SULFATE) [Concomitant]

REACTIONS (9)
  - PYREXIA [None]
  - ACUTE GENERALISED EXANTHEMATOUS PUSTULOSIS [None]
  - TYPE IV HYPERSENSITIVITY REACTION [None]
  - CHILLS [None]
  - SYNCOPE [None]
  - LEUKOCYTOSIS [None]
  - NEUTROPHILIA [None]
  - HYPOTENSION [None]
  - ORTHOSTATIC HYPOTENSION [None]
